FAERS Safety Report 10038721 (Version 1)
Quarter: 2014Q1

REPORT INFORMATION
  Report Type: Spontaneous
  Country: FR (occurrence: FR)
  Receive Date: 20140326
  Receipt Date: 20140326
  Transmission Date: 20141002
  Serious: Yes (Other)
  Sender: FDA-Public Use
  Company Number: FR-SA-2014SA033335

PATIENT
  Age: 88 Year
  Sex: Female

DRUGS (5)
  1. APROVEL [Suspect]
     Indication: PRODUCT USED FOR UNKNOWN INDICATION
     Route: 065
  2. TENORMINE [Interacting]
     Indication: HYPERTENSION
     Route: 065
     Dates: start: 201402
  3. TENORMINE [Interacting]
     Indication: EXTRASYSTOLES
     Route: 065
     Dates: start: 201402
  4. LASILIX [Concomitant]
     Dosage: FREQUENCY: AT MORNING
  5. CELECTOL [Concomitant]
     Indication: ANGINA PECTORIS

REACTIONS (5)
  - Hypertension [Not Recovered/Not Resolved]
  - Drug interaction [Unknown]
  - Drug ineffective [Unknown]
  - Middle insomnia [Not Recovered/Not Resolved]
  - Tinnitus [Not Recovered/Not Resolved]
